FAERS Safety Report 7744463-2 (Version None)
Quarter: 2011Q3

REPORT INFORMATION
  Report Type: 
  Country: None (occurrence: None)
  Receive Date: 20110908
  Receipt Date: 20110902
  Transmission Date: 20111222
  Serious: Yes (Death)
  Sender: FDA-Public Use
  Company Number: 201110523

PATIENT
  Age: 31 Year
  Sex: Male

DRUGS (2)
  1. MORPHINE [Concomitant]
  2. LIORESAL [Suspect]
     Indication: MUSCLE SPASTICITY
     Dosage: 20 MCG, DAILY, INTRATHECAL
     Route: 037

REACTIONS (3)
  - MEDICAL DEVICE COMPLICATION [None]
  - EMBOLISM [None]
  - DEVICE BREAKAGE [None]
